FAERS Safety Report 4979023-X (Version None)
Quarter: 2006Q2

REPORT INFORMATION
  Report Type: 
  Country: None (occurrence: None)
  Receive Date: 20060421
  Receipt Date: 20060410
  Transmission Date: 20061013
  Serious: Yes (Other)
  Sender: FDA-Public Use
  Company Number: GB-ABBOTT-06P-167-0330372-00

PATIENT
  Age: 38 Year
  Sex: Female

DRUGS (5)
  1. VALPROATE SODIUM [Suspect]
     Indication: CYCLOTHYMIC DISORDER
     Dosage: MR 1200 MG NOCTE
     Route: 048
     Dates: start: 20050810, end: 20051205
  2. VALPROATE SODIUM [Suspect]
     Indication: DEPRESSION
  3. REBOXETINE [Concomitant]
     Indication: DEPRESSION
     Route: 048
     Dates: start: 20050509
  4. TRAZODONE HCL [Concomitant]
     Indication: DRUG USE FOR UNKNOWN INDICATION
     Route: 048
     Dates: start: 20050509, end: 20050808
  5. PROPRANOLOL [Concomitant]
     Indication: MIGRAINE
     Dosage: ^SR 80 MG OD^
     Route: 048
     Dates: start: 20040101

REACTIONS (2)
  - MOUTH ULCERATION [None]
  - TOOTH DISORDER [None]
